FAERS Safety Report 21530295 (Version 1)
Quarter: 2022Q4

REPORT INFORMATION
  Report Type: Spontaneous
  Country: US (occurrence: None)
  Receive Date: 20221028
  Receipt Date: 20221028
  Transmission Date: 20230112
  Serious: Yes (Life-Threatening, Other)
  Sender: FDA-Public Use
  Company Number: None

PATIENT
  Age: 72 Year
  Sex: Female
  Weight: 100.2 kg

DRUGS (14)
  1. PIQRAY [Suspect]
     Active Substance: ALPELISIB
     Indication: Breast cancer metastatic
     Dosage: FREQUENCY : DAILY;?
     Route: 048
     Dates: start: 20221021, end: 20221027
  2. duloxetine 20 mg DR capsule [Concomitant]
  3. NAPROXEN [Concomitant]
     Active Substance: NAPROXEN
  4. PANTOPRAZOLE [Concomitant]
     Active Substance: PANTOPRAZOLE
  5. levetiracetam 1,000 mg tablet [Concomitant]
  6. acetaminophen 1,000 mg tablet [Concomitant]
  7. cetirizine 10 mg tablet [Concomitant]
  8. loperamide 2 mg capsule [Concomitant]
  9. EXEMESTANE [Concomitant]
     Active Substance: EXEMESTANE
  10. bumetanide 1 mg tablet [Concomitant]
  11. METHOTREXATE (METHOTREXATE SODIUM) [Concomitant]
     Active Substance: METHOTREXATE SODIUM
  12. FOLIC ACID [Concomitant]
     Active Substance: FOLIC ACID
  13. OMEPRAZOLE [Concomitant]
     Active Substance: OMEPRAZOLE
  14. cholecalciferol 2,000 unit tablet [Concomitant]

REACTIONS (1)
  - Seizure [None]

NARRATIVE: CASE EVENT DATE: 20221027
